FAERS Safety Report 18137703 (Version 2)
Quarter: 2020Q4

REPORT INFORMATION
  Report Type: Report from Study
  Country: None (occurrence: NL)
  Receive Date: 20200811
  Receipt Date: 20201005
  Transmission Date: 20210113
  Serious: Yes (Disabling, Other)
  Sender: FDA-Public Use
  Company Number: NL-ABBVIE-20K-114-3520609-00

PATIENT
  Sex: Female

DRUGS (3)
  1. DUODOPA [Suspect]
     Active Substance: CARBIDOPA\LEVODOPA
     Indication: PARKINSON^S DISEASE
     Dosage: MD: 8.5 CD: 3.9 ED: 2.6
     Route: 050
     Dates: start: 20170223
  2. DUODOPA [Suspect]
     Active Substance: CARBIDOPA\LEVODOPA
  3. NEUPRO [Concomitant]
     Active Substance: ROTIGOTINE
     Indication: PARKINSON^S DISEASE
     Dosage: HALVED
     Route: 062

REACTIONS (10)
  - Weight increased [Unknown]
  - Hypophagia [Recovered/Resolved]
  - Tremor [Unknown]
  - Spinal compression fracture [Not Recovered/Not Resolved]
  - Visual impairment [Recovered/Resolved]
  - On and off phenomenon [Unknown]
  - Stoma site erythema [Unknown]
  - Frequent bowel movements [Recovered/Resolved]
  - Spinal pain [Not Recovered/Not Resolved]
  - Dyskinesia [Recovered/Resolved]

NARRATIVE: CASE EVENT DATE: 20200225
